FAERS Safety Report 15662643 (Version 2)
Quarter: 2020Q1

REPORT INFORMATION
  Report Type: Spontaneous
  Country: US (occurrence: US)
  Receive Date: 20181127
  Receipt Date: 20200331
  Transmission Date: 20200409
  Serious: Yes (Other)
  Sender: FDA-Public Use
  Company Number: US-SA-2018SA090622

PATIENT
  Age: 49 Year
  Sex: Female
  Weight: 77 kg

DRUGS (7)
  1. 5-FLUOROURACIL [FLUOROURACIL SODIUM] [Concomitant]
     Active Substance: FLUOROURACIL SODIUM
     Dosage: UNK, UNK
     Route: 065
  2. SINGULAIR [Concomitant]
     Active Substance: MONTELUKAST SODIUM
     Dosage: UNK, UNK
     Route: 065
  3. DOCETAXEL. [Suspect]
     Active Substance: DOCETAXEL
     Dosage: 193 MG, Q3W
     Route: 042
     Dates: start: 20131018, end: 20131018
  4. ZYRTEC [Concomitant]
     Active Substance: CETIRIZINE HYDROCHLORIDE
     Dosage: UNK, UNK
     Route: 065
  5. NEOSAR [Concomitant]
     Active Substance: CYCLOPHOSPHAMIDE
     Dosage: UNK, UNK
     Route: 065
  6. DOCETAXEL. [Suspect]
     Active Substance: DOCETAXEL
     Indication: BREAST CANCER FEMALE
     Dosage: 193 MG, Q3W
     Route: 042
     Dates: start: 20130906, end: 20130906
  7. EPIRUBICIN [Concomitant]
     Active Substance: EPIRUBICIN
     Dosage: UNK, UNK
     Route: 065

REACTIONS (4)
  - Impaired quality of life [Unknown]
  - Alopecia [Recovering/Resolving]
  - Anxiety [Unknown]
  - Emotional distress [Unknown]

NARRATIVE: CASE EVENT DATE: 20130715
